FAERS Safety Report 6541587-2 (Version None)
Quarter: 2010Q1

REPORT INFORMATION
  Report Type: 
  Country: None (occurrence: None)
  Receive Date: 20100119
  Receipt Date: 20100112
  Transmission Date: 20100710
  Serious: Yes (Other)
  Sender: FDA-Public Use
  Company Number: US-ROCHE-679174

PATIENT
  Sex: Male
  Weight: 111.1 kg

DRUGS (4)
  1. PEGASYS [Suspect]
     Indication: HEPATITIS
     Route: 058
     Dates: start: 20090601, end: 20091201
  2. COPEGUS [Suspect]
     Indication: HEPATITIS
     Dosage: FORM: PILL; DOSE: 6 PILLS DAILY
     Route: 048
     Dates: start: 20090601, end: 20091201
  3. INSULIN [Concomitant]
  4. LISINOPRIL [Concomitant]

REACTIONS (6)
  - ALOPECIA [None]
  - GALLBLADDER DISORDER [None]
  - INFLUENZA LIKE ILLNESS [None]
  - NAUSEA [None]
  - VIROLOGIC FAILURE [None]
  - WEIGHT DECREASED [None]
